FAERS Safety Report 8236018-0 (Version None)
Quarter: 2012Q1

REPORT INFORMATION
  Report Type: 
  Country: None (occurrence: None)
  Receive Date: 20120326
  Receipt Date: 20120316
  Transmission Date: 20120608
  Serious: Yes (Other)
  Sender: FDA-Public Use
  Company Number: JP-ASTRAZENECA-2011SE42659

PATIENT
  Age: 28 Year
  Sex: Female
  Weight: 54 kg

DRUGS (7)
  1. CANDESARTAN CILEXETIL [Suspect]
     Route: 048
  2. ESTRADIOL [Concomitant]
     Route: 048
     Dates: end: 20101216
  3. TACROLIMUS [Concomitant]
     Route: 048
     Dates: end: 20101216
  4. COTRIM [Concomitant]
     Route: 048
  5. MEDROXYPROGESTERONE ACETATE [Concomitant]
     Route: 048
     Dates: end: 20101216
  6. CANDESARTAN CILEXETIL [Suspect]
     Indication: RENAL FAILURE CHRONIC
     Route: 048
     Dates: start: 20100114, end: 20101216
  7. COTRIM [Concomitant]
     Route: 048
     Dates: end: 20101216

REACTIONS (2)
  - OLIGOHYDRAMNIOS [None]
  - MATERNAL EXPOSURE DURING PREGNANCY [None]
